FAERS Safety Report 9380059 (Version 1)
Quarter: 2013Q3

REPORT INFORMATION
  Report Type: Spontaneous
  Country: JP (occurrence: JP)
  Receive Date: 20130702
  Receipt Date: 20130702
  Transmission Date: 20140515
  Serious: Yes (Other)
  Sender: FDA-Public Use
  Company Number: JP-BAYER-2013-075955

PATIENT
  Sex: Male

DRUGS (3)
  1. ACETYLSALICYLIC ACID({=100 MG) [Suspect]
     Indication: CAROTID ARTERY STENOSIS
     Route: 048
  2. CLOPIDOGREL SULFATE [Suspect]
     Indication: CAROTID ARTERY STENOSIS
     Dosage: UNK
     Route: 048
  3. CILOSTAZOL [Suspect]
     Indication: CAROTID ARTERY STENOSIS
     Route: 048

REACTIONS (4)
  - Gastric antral vascular ectasia [None]
  - Gastric haemorrhage [Recovered/Resolved]
  - Anaemia [None]
  - Labelled drug-drug interaction medication error [None]
